FAERS Safety Report 18701863 (Version 3)
Quarter: 2021Q1

REPORT INFORMATION
  Report Type: Report from Study
  Country: KR (occurrence: KR)
  Receive Date: 20210105
  Receipt Date: 20210312
  Transmission Date: 20210419
  Serious: Yes (Death, Hospitalization, Other)
  Sender: FDA-Public Use
  Company Number: NVSC2020KR340290

PATIENT
  Age: 71 Year
  Sex: Female
  Weight: 50.55 kg

DRUGS (6)
  1. BYL719 [Suspect]
     Active Substance: ALPELISIB
     Dosage: UNK
     Route: 048
     Dates: start: 20201221
  2. VITIS VINIFERA (GRAPE) FLOWER EXTRACT [Concomitant]
     Active Substance: VITIS VINIFERA FLOWERING TOP
     Indication: LYMPHOEDEMA
     Dosage: 150 MG
     Route: 065
     Dates: start: 20200323, end: 20201217
  3. AMLODIPINE [Concomitant]
     Active Substance: AMLODIPINE BESYLATE
     Indication: HYPERTENSION
     Dosage: 5 MG
     Route: 065
     Dates: start: 20201023, end: 20201217
  4. ANASTROZOLE. [Concomitant]
     Active Substance: ANASTROZOLE
     Indication: BREAST CANCER
     Dosage: 1 MG
     Route: 065
     Dates: start: 20201212, end: 20201217
  5. INSULIN [Concomitant]
     Active Substance: INSULIN NOS
     Indication: PRODUCT USED FOR UNKNOWN INDICATION
     Dosage: UNK
     Route: 065
  6. BYL719 [Suspect]
     Active Substance: ALPELISIB
     Indication: BREAST CANCER METASTATIC
     Dosage: 300 MG
     Route: 048
     Dates: start: 20201212, end: 20201217

REACTIONS (8)
  - Polydipsia [Unknown]
  - Mental status changes [Unknown]
  - Myocardial infarction [Fatal]
  - Hyperglycaemia [Recovering/Resolving]
  - Ketoacidosis [Recovered/Resolved]
  - Seizure [Unknown]
  - Pulse absent [Unknown]
  - Dry mouth [Unknown]

NARRATIVE: CASE EVENT DATE: 20201217
